FAERS Safety Report 8112235-5 (Version None)
Quarter: 2011Q4

REPORT INFORMATION
  Report Type: 
  Country: None (occurrence: None)
  Receive Date: 20111223
  Receipt Date: 20101221
  Transmission Date: 20120403
  Serious: Yes (Other)
  Sender: FDA-Public Use
  Company Number: PHHY2010US81982

PATIENT
  Age: 17 Year
  Sex: Female
  Weight: 110 kg

DRUGS (5)
  1. FOCALIN XR [Suspect]
     Indication: ATTENTION DEFICIT/HYPERACTIVITY DISORDER
     Dosage: 20 MG, ORAL
     Route: 048
     Dates: start: 20101027, end: 20101027
  2. SEASONALE (ETHINYLESTRADIOL LEVONORGESTREL) [Concomitant]
  3. LIPITOR [Concomitant]
  4. LEXAPRO [Concomitant]
  5. CLONIDINE [Concomitant]

REACTIONS (4)
  - EXTRASYSTOLES [None]
  - DIZZINESS [None]
  - CEREBROVASCULAR ACCIDENT [None]
  - SUPRAVENTRICULAR TACHYCARDIA [None]
